FAERS Safety Report 11399947 (Version 1)
Quarter: 2015Q3

REPORT INFORMATION
  Report Type: Spontaneous
  Country: US (occurrence: None)
  Receive Date: 20150805
  Receipt Date: 20150805
  Transmission Date: 20151125
  Serious: Yes (Other)
  Sender: FDA-Public Use
  Company Number: GTI002553

PATIENT
  Age: 37 Year
  Sex: Female
  Weight: 77.57 kg

DRUGS (11)
  1. ACICLOVIR [Concomitant]
     Active Substance: ACYCLOVIR
  2. METFORMIN [Concomitant]
     Active Substance: METFORMIN HYDROCHLORIDE
  3. TYLENOL [Concomitant]
     Active Substance: ACETAMINOPHEN
  4. ADDERALL [Concomitant]
     Active Substance: AMPHETAMINE ASPARTATE\AMPHETAMINE SULFATE\DEXTROAMPHETAMINE SACCHARATE\DEXTROAMPHETAMINE SULFATE
  5. PREDNISONE. [Concomitant]
     Active Substance: PREDNISONE
  6. DIOVAN [Concomitant]
     Active Substance: VALSARTAN
  7. MESTINON [Concomitant]
     Active Substance: PYRIDOSTIGMINE BROMIDE
  8. SULFA [Concomitant]
     Active Substance: UNSPECIFIED INGREDIENT
  9. CARDIZEM [Concomitant]
     Active Substance: DILTIAZEM HYDROCHLORIDE
  10. ENBREL [Concomitant]
     Active Substance: ETANERCEPT
  11. GAMUNEX-C [Suspect]
     Active Substance: HUMAN IMMUNOGLOBULIN G
     Indication: MYASTHENIA GRAVIS
     Route: 042
     Dates: start: 20140906, end: 20140906

REACTIONS (1)
  - Anaphylactic reaction [None]

NARRATIVE: CASE EVENT DATE: 20140906
